FAERS Safety Report 10472260 (Version 1)
Quarter: 2014Q3

REPORT INFORMATION
  Report Type: Spontaneous
  Country: US (occurrence: None)
  Receive Date: 20140923
  Receipt Date: 20140923
  Transmission Date: 20150326
  Serious: No
  Sender: FDA-Public Use
  Company Number: None

PATIENT
  Age: 53 Year

DRUGS (1)
  1. MEDROXYPROGESTERONE [Suspect]
     Active Substance: MEDROXYPROGESTERONE
     Indication: MENOMETRORRHAGIA
     Dosage: 1 TABLET, ONCE DAILY, TAKEN BY MOUTH
     Route: 048

REACTIONS (8)
  - Hypoaesthesia [None]
  - Heart rate increased [None]
  - Loss of consciousness [None]
  - Asthenia [None]
  - Dry mouth [None]
  - Menorrhagia [None]
  - Dizziness [None]
  - Malaise [None]

NARRATIVE: CASE EVENT DATE: 20140916
